FAERS Safety Report 5880253-3 (Version None)
Quarter: 2008Q3

REPORT INFORMATION
  Report Type: 
  Country: None (occurrence: None)
  Receive Date: 20080912
  Receipt Date: 20080310
  Transmission Date: 20090109
  Serious: No
  Sender: FDA-Public Use
  Company Number: US-BAYER-200817094NA

PATIENT
  Age: 35 Year
  Sex: Female

DRUGS (1)
  1. ULTRAVIST 370 [Suspect]
     Indication: COMPUTERISED TOMOGRAM ABDOMEN
     Route: 042
     Dates: start: 20080310, end: 20080310

REACTIONS (3)
  - NASAL CONGESTION [None]
  - OROPHARYNGEAL DISCOMFORT [None]
  - URTICARIA [None]
